FAERS Safety Report 15587501 (Version 1)
Quarter: 2018Q4

REPORT INFORMATION
  Report Type: Spontaneous
  Country: US (occurrence: US)
  Receive Date: 20181105
  Receipt Date: 20181105
  Transmission Date: 20190205
  Serious: Yes (Other)
  Sender: FDA-Public Use
  Company Number: US-SA-2018SA302404

PATIENT
  Age: 66 Year
  Sex: Female

DRUGS (1)
  1. GOLD BOND EXTRA STRENGTH POWDER [Suspect]
     Active Substance: MENTHOL\ZINC OXIDE

REACTIONS (1)
  - Mesothelioma malignant [Unknown]
